FAERS Safety Report 17434737 (Version 1)
Quarter: 2020Q1

REPORT INFORMATION
  Report Type: Spontaneous
  Country: US (occurrence: US)
  Receive Date: 20200219
  Receipt Date: 20200219
  Transmission Date: 20200409
  Serious: Yes (Other)
  Sender: FDA-Public Use
  Company Number: US-PFIZER INC-2020069679

PATIENT
  Age: 37 Year
  Sex: Male
  Weight: 68.4 kg

DRUGS (2)
  1. ATENOLOL. [Concomitant]
     Active Substance: ATENOLOL
     Indication: BLOOD PRESSURE ABNORMAL
     Dosage: 50 MG, 1X/DAY
     Route: 048
  2. XANAX [Suspect]
     Active Substance: ALPRAZOLAM
     Indication: ANXIETY
     Dosage: 2 MG, UNK
     Dates: start: 2010

REACTIONS (6)
  - Aggression [Not Recovered/Not Resolved]
  - Personality change [Not Recovered/Not Resolved]
  - Belligerence [Not Recovered/Not Resolved]
  - Abnormal behaviour [Unknown]
  - Prescription drug used without a prescription [Unknown]
  - Therapeutic response unexpected [Not Recovered/Not Resolved]

NARRATIVE: CASE EVENT DATE: 2010
